FAERS Safety Report 5198731-1 (Version None)
Quarter: 2007Q1

REPORT INFORMATION
  Report Type: 
  Country: None (occurrence: None)
  Receive Date: 20070104
  Receipt Date: 20070102
  Transmission Date: 20070707
  Serious: Yes (Hospitalization)
  Sender: FDA-Public Use
  Company Number: FR-GLAXOSMITHKLINE-B0440742A

PATIENT
  Age: 65 Year
  Sex: Female

DRUGS (5)
  1. AUGMENTIN '125' [Suspect]
     Indication: ANTIBIOTIC PROPHYLAXIS
     Dosage: 1G THREE TIMES PER DAY
     Route: 042
     Dates: start: 20051026, end: 20051027
  2. PERFALGAN [Suspect]
     Indication: PAIN PROPHYLAXIS
     Dosage: 1G FOUR TIMES PER DAY
     Route: 042
     Dates: start: 20051026, end: 20051028
  3. ATARAX [Concomitant]
     Indication: PREMEDICATION
     Dosage: 50MG PER DAY
     Route: 048
     Dates: start: 20051025, end: 20051025
  4. ATARAX [Concomitant]
     Dosage: 100MG PER DAY
     Route: 048
     Dates: start: 20051026, end: 20051026
  5. TAVANIC [Concomitant]
     Dosage: 500MG UNKNOWN
     Route: 065
     Dates: start: 20051028

REACTIONS (9)
  - ACUTE GENERALISED EXANTHEMATOUS PUSTULOSIS [None]
  - INFLAMMATION [None]
  - LEUKOCYTOSIS [None]
  - LIVIDITY [None]
  - OEDEMA PERIPHERAL [None]
  - PURPURA [None]
  - PYREXIA [None]
  - RASH SCARLATINIFORM [None]
  - SKIN EXFOLIATION [None]
